FAERS Safety Report 13738641 (Version 2)
Quarter: 2018Q2

REPORT INFORMATION
  Report Type: Spontaneous
  Country: US (occurrence: US)
  Receive Date: 20170710
  Receipt Date: 20180627
  Transmission Date: 20180711
  Serious: Yes (Other)
  Sender: FDA-Public Use
  Company Number: US-SAOL THERAPEUTICS-2017SAO00308

PATIENT
  Sex: Male

DRUGS (10)
  1. PRIALT [Suspect]
     Active Substance: ZICONOTIDE ACETATE
     Dosage: 23.483 ?G, \DAY
     Route: 037
     Dates: end: 20160901
  2. MORPHINE [Suspect]
     Active Substance: MORPHINE
     Dosage: 0.199 MG, \DAY
     Route: 037
  3. PRIALT [Suspect]
     Active Substance: ZICONOTIDE ACETATE
     Dosage: 2.975 ?G, \DAY
     Route: 037
     Dates: start: 20160901, end: 20160913
  4. BACLOFEN. [Suspect]
     Active Substance: BACLOFEN
     Dosage: UNK
  5. MORPHINE [Suspect]
     Active Substance: MORPHINE
     Dosage: 0.253 MG, \DAY
     Route: 037
     Dates: start: 20160901, end: 20160913
  6. BACLOFEN. [Suspect]
     Active Substance: BACLOFEN
     Indication: MUSCLE SPASTICITY
     Dosage: 1998.6 ?G, \DAY
     Route: 037
     Dates: end: 20160901
  7. MORPHINE [Suspect]
     Active Substance: MORPHINE
     Dosage: 1.9986 MG, \DAY
     Route: 037
     Dates: end: 20160901
  8. BACLOFEN. [Suspect]
     Active Substance: BACLOFEN
     Indication: LUMBAR RADICULOPATHY
     Dosage: 253.2 ?G, \DAY
     Route: 037
     Dates: start: 20160901, end: 20160913
  9. PRIALT [Suspect]
     Active Substance: ZICONOTIDE ACETATE
     Dosage: 3.498 ?G, \DAY
     Route: 037
  10. BACLOFEN. [Suspect]
     Active Substance: BACLOFEN
     Dosage: 99.9 ?G, \DAY
     Route: 037

REACTIONS (7)
  - Hypoaesthesia [Unknown]
  - Nausea [Unknown]
  - Bladder dysfunction [Unknown]
  - Malaise [Unknown]
  - Nervous system disorder [Unknown]
  - Musculoskeletal disorder [Unknown]
  - Tinnitus [Unknown]

NARRATIVE: CASE EVENT DATE: 20160901
